FAERS Safety Report 13870188 (Version 2)
Quarter: 2017Q3

REPORT INFORMATION
  Report Type: Spontaneous
  Country: PT (occurrence: PT)
  Receive Date: 20170815
  Receipt Date: 20170822
  Transmission Date: 20171127
  Serious: Yes (Other)
  Sender: FDA-Public Use
  Company Number: PT-PFIZER INC-2017348276

PATIENT
  Age: 30 Year
  Sex: Female
  Weight: 58 kg

DRUGS (3)
  1. ZITHROMAX [Suspect]
     Active Substance: AZITHROMYCIN DIHYDRATE
     Dosage: 500 MG, 1X/DAY
     Route: 048
     Dates: start: 20170604, end: 20170604
  2. ZITHROMAX [Suspect]
     Active Substance: AZITHROMYCIN DIHYDRATE
     Indication: VAGINAL INFECTION
     Dosage: 500 MG, 2X/DAY
     Route: 048
     Dates: start: 20170603, end: 20170603
  3. YASMINELLE [Concomitant]
     Active Substance: DROSPIRENONE
     Indication: ORAL CONTRACEPTION
     Dosage: 1 DF, 1X/DAY
     Route: 048

REACTIONS (4)
  - Abdominal pain upper [Recovered/Resolved]
  - Product use issue [Unknown]
  - Lipase increased [Recovered/Resolved]
  - Amylase increased [Recovered/Resolved]

NARRATIVE: CASE EVENT DATE: 20170603
